FAERS Safety Report 12631196 (Version 2)
Quarter: 2016Q3

REPORT INFORMATION
  Report Type: Spontaneous
  Country: US (occurrence: US)
  Receive Date: 20160808
  Receipt Date: 20160808
  Transmission Date: 20161109
  Serious: No
  Sender: FDA-Public Use
  Company Number: US-BEH-2015052744

PATIENT
  Sex: Female
  Weight: 85 kg

DRUGS (19)
  1. LIDOCAINE. [Concomitant]
     Active Substance: LIDOCAINE
  2. EXCEDRIN [Concomitant]
     Active Substance: ACETAMINOPHEN\ASPIRIN\CAFFEINE
  3. SYNTHROID [Concomitant]
     Active Substance: LEVOTHYROXINE SODIUM
  4. HIZENTRA [Suspect]
     Active Substance: HUMAN IMMUNOGLOBULIN G
     Route: 058
  5. BUPROPION. [Concomitant]
     Active Substance: BUPROPION
  6. DIPHENHYDRAMINE. [Concomitant]
     Active Substance: DIPHENHYDRAMINE
  7. EPIPEN [Concomitant]
     Active Substance: EPINEPHRINE
  8. ALEVE [Concomitant]
     Active Substance: NAPROXEN SODIUM
  9. LMX [Concomitant]
     Active Substance: LIDOCAINE
  10. BIAXIN [Concomitant]
     Active Substance: CLARITHROMYCIN
  11. OMEPRAZOLE. [Concomitant]
     Active Substance: OMEPRAZOLE
  12. TUMS [Concomitant]
     Active Substance: CALCIUM CARBONATE
  13. TYLENOL [Concomitant]
     Active Substance: ACETAMINOPHEN
  14. ZYRTEC [Concomitant]
     Active Substance: CETIRIZINE HYDROCHLORIDE
  15. KYO-DOPHILUS [Concomitant]
  16. ACETAMINOPHEN. [Concomitant]
     Active Substance: ACETAMINOPHEN
  17. HIZENTRA [Suspect]
     Active Substance: HUMAN IMMUNOGLOBULIN G
     Indication: IMMUNODEFICIENCY COMMON VARIABLE
     Route: 058
  18. SYNTHROID [Concomitant]
     Active Substance: LEVOTHYROXINE SODIUM
  19. TAGAMET [Concomitant]
     Active Substance: CIMETIDINE

REACTIONS (3)
  - Multiple allergies [Unknown]
  - Stress [Unknown]
  - Migraine [Unknown]
